FAERS Safety Report 4401315-3 (Version None)
Quarter: 2004Q3

REPORT INFORMATION
  Report Type: 
  Country: None (occurrence: None)
  Receive Date: 20040907
  Receipt Date: 20040302
  Transmission Date: 20050211
  Serious: No
  Sender: FDA-Public Use
  Company Number: US-BRISTOL-MYERS SQUIBB COMPANY-12521811

PATIENT
  Age: 87 Year
  Sex: Male
  Weight: 68 kg

DRUGS (4)
  1. COUMADIN [Suspect]
     Indication: CARDIAC DISORDER
     Dosage: STARTED 5-6 MOS AGO 2.5 MG DAILY;5 MG MON.,WED.,FRI.AND 2.5 MG THE OTHER DAYS ABOUT 1 MO AGO
     Route: 048
  2. DIAZID [Concomitant]
  3. MULTI-VITAMIN [Concomitant]
  4. SAW PALMETTO [Concomitant]

REACTIONS (1)
  - ARTHRALGIA [None]
